FAERS Safety Report 13525203 (Version 1)
Quarter: 2017Q2

REPORT INFORMATION
  Report Type: Spontaneous
  Country: US (occurrence: US)
  Receive Date: 20170508
  Receipt Date: 20170508
  Transmission Date: 20170830
  Serious: Yes (Other)
  Sender: FDA-Public Use
  Company Number: US-ROCHE-1126098

PATIENT
  Sex: Male

DRUGS (2)
  1. AVASTIN [Suspect]
     Active Substance: BEVACIZUMAB
     Indication: RENAL CANCER
     Route: 065
  2. THALIDOMIDE [Concomitant]
     Active Substance: THALIDOMIDE
     Route: 065
     Dates: start: 200307

REACTIONS (2)
  - Vena cava thrombosis [Unknown]
  - Disease progression [Unknown]
